FAERS Safety Report 16825481 (Version 1)
Quarter: 2019Q3

REPORT INFORMATION
  Report Type: Spontaneous
  Country: BR (occurrence: BR)
  Receive Date: 20190919
  Receipt Date: 20190919
  Transmission Date: 20191005
  Serious: Yes (Other)
  Sender: FDA-Public Use
  Company Number: BR-SA-2019SA248984

PATIENT
  Age: 49 Year
  Sex: Female

DRUGS (5)
  1. DECADRON [Concomitant]
     Active Substance: DEXAMETHASONE
  2. ELOXATIN [Suspect]
     Active Substance: OXALIPLATIN
     Indication: PRODUCT USED FOR UNKNOWN INDICATION
     Dosage: 99.28 MG, Q15D
     Route: 042
     Dates: start: 20190708, end: 20190708
  3. CALCIUM FOLINATE [Suspect]
     Active Substance: LEUCOVORIN CALCIUM
     Indication: PRODUCT USED FOR UNKNOWN INDICATION
     Dosage: UNK
     Route: 042
     Dates: start: 20190708
  4. ONICIT [Concomitant]
     Active Substance: PALONOSETRON HYDROCHLORIDE
  5. EMEND [Concomitant]
     Active Substance: APREPITANT

REACTIONS (3)
  - Erythema [Recovered/Resolved]
  - Oesophageal obstruction [Recovered/Resolved]
  - Back pain [Recovered/Resolved]

NARRATIVE: CASE EVENT DATE: 20190708
